FAERS Safety Report 9624595 (Version 2)
Quarter: 2013Q4

REPORT INFORMATION
  Report Type: Report from Study
  Country: NL (occurrence: NL)
  Receive Date: 20131015
  Receipt Date: 20131015
  Transmission Date: 20140711
  Serious: Yes (Death)
  Sender: FDA-Public Use
  Company Number: NL-ABBVIE-11P-114-0709488-00

PATIENT
  Age: 76 Year
  Sex: Male
  Weight: 90 kg

DRUGS (3)
  1. LUCRIN DEPOT 30 MG [Suspect]
     Indication: PROSTATE CANCER
     Route: 058
     Dates: start: 20100316, end: 20100908
  2. LUCRIN DEPOT 11.25 MG [Suspect]
     Indication: PROSTATE CANCER
     Route: 058
     Dates: start: 2005, end: 20091221
  3. LUCRIN [Suspect]
     Indication: PROSTATE CANCER

REACTIONS (3)
  - Death [Fatal]
  - Injection site extravasation [Recovered/Resolved with Sequelae]
  - Injection site scar [Not Recovered/Not Resolved]
